FAERS Safety Report 7738434-X (Version None)
Quarter: 2011Q3

REPORT INFORMATION
  Report Type: 
  Country: None (occurrence: None)
  Receive Date: 20110908
  Receipt Date: 20110829
  Transmission Date: 20111222
  Serious: Yes (Death)
  Sender: FDA-Public Use
  Company Number: US-CELGENEUS-163-21880-11081903

PATIENT
  Sex: Male

DRUGS (30)
  1. TERAZOSIN HCL [Concomitant]
     Dosage: 1 MILLIGRAM
     Route: 048
  2. POTASSIUM GLUCONATE TAB [Concomitant]
     Dosage: 2 MILLIEQUIVALENTS
     Route: 048
  3. HYDROCODONE BITARTRATE AND ACETAMINOPHEN [Concomitant]
     Dosage: 5-500MG
     Route: 048
  4. KEFLEX [Concomitant]
     Dosage: 500 MILLIGRAM
     Route: 065
  5. DEXAMETHASONE [Concomitant]
     Dosage: 4 MILLIGRAM
     Route: 048
  6. NYSTATIN [Concomitant]
     Dosage: 5 MILLILITER
     Route: 050
  7. COMBIVENT [Concomitant]
     Dosage: 18-103MCG
     Route: 065
  8. NEURONTIN [Concomitant]
     Dosage: 300 MILLIGRAM
     Route: 048
  9. REVLIMID [Suspect]
     Indication: MULTIPLE MYELOMA
     Dosage: 15 MILLIGRAM
     Route: 048
     Dates: start: 20091101, end: 20110701
  10. MS CONTIN [Suspect]
     Dosage: 30 MILLIGRAM
     Route: 048
  11. NEXIUM [Concomitant]
     Dosage: 40 MILLIGRAM
     Route: 048
  12. LUMIGAN [Concomitant]
     Dosage: .03 PERCENT
     Route: 065
  13. FLONASE [Concomitant]
     Dosage: 50 MICROGRAM
     Route: 045
  14. CLARITIN [Concomitant]
     Dosage: 10 MILLIGRAM
     Route: 065
  15. ATIVAN [Concomitant]
     Dosage: .5 MILLIGRAM
     Route: 065
  16. MULTI-VITAMINS [Concomitant]
     Route: 048
  17. CEPHALEXIN MONOHYDRATE [Concomitant]
     Dosage: 500 MILLIGRAM
     Route: 048
  18. FLOMAX [Concomitant]
     Route: 065
  19. TRAVATAN [Concomitant]
     Dosage: .004 PERCENT
     Route: 065
  20. SIMVASTATIN [Concomitant]
     Dosage: 5 MILLIGRAM
     Route: 048
  21. XYZAL [Concomitant]
     Dosage: 5 MILLIGRAM
     Route: 065
  22. PRILOSEC [Concomitant]
     Dosage: 20 MILLIGRAM
     Route: 065
  23. LOVAZA [Concomitant]
     Dosage: 1000 MILLIGRAM
     Route: 048
  24. LEVAQUIN [Concomitant]
     Dosage: 500 MILLIGRAM
     Route: 048
  25. SENNA [Concomitant]
     Route: 065
  26. HYDROCODONE BITARTRATE [Suspect]
     Route: 065
  27. ALTACE [Concomitant]
     Dosage: 5 MILLIGRAM
     Route: 048
  28. ASPIRIN [Concomitant]
     Dosage: 81 MILLIGRAM
     Route: 048
  29. FUROSEMIDE [Concomitant]
     Dosage: 20 MILLIGRAM
     Route: 065
  30. QUININE SULFATE [Concomitant]
     Dosage: 60 MILLIGRAM
     Route: 065

REACTIONS (15)
  - ATELECTASIS [None]
  - LACTIC ACIDOSIS [None]
  - BLOOD UREA INCREASED [None]
  - UNRESPONSIVE TO STIMULI [None]
  - METABOLIC ENCEPHALOPATHY [None]
  - BLOOD GLUCOSE INCREASED [None]
  - PULMONARY OEDEMA [None]
  - BLOOD CREATININE INCREASED [None]
  - HYPOTENSION [None]
  - RENAL FAILURE ACUTE [None]
  - CARDIAC FAILURE CONGESTIVE [None]
  - ACUTE RESPIRATORY FAILURE [None]
  - ACCIDENTAL OVERDOSE [None]
  - SEPSIS [None]
  - GENERAL PHYSICAL HEALTH DETERIORATION [None]
